FAERS Safety Report 8986040 (Version 1)
Quarter: 2012Q4

REPORT INFORMATION
  Report Type: Spontaneous
  Country: US (occurrence: None)
  Receive Date: 20121214
  Receipt Date: 20121214
  Transmission Date: 20130627
  Serious: Yes (Other)
  Sender: FDA-Public Use
  Company Number: 2012SP004406

PATIENT

DRUGS (2)
  1. VANCOMYCIN [Suspect]
     Indication: DRUG USE FOR UNKNOWN INDICATION
  2. ZOSYN [Suspect]
     Indication: DRUG USE FOR UNKNOWN INDICATION

REACTIONS (2)
  - Nephropathy toxic [None]
  - Drug interaction [None]
